FAERS Safety Report 20951527 (Version 1)
Quarter: 2022Q2

REPORT INFORMATION
  Report Type: Report from Study
  Country: US (occurrence: US)
  Receive Date: 20220613
  Receipt Date: 20220613
  Transmission Date: 20220721
  Serious: No
  Sender: FDA-Public Use
  Company Number: US-SAGE-2022SAGE000054

PATIENT

DRUGS (8)
  1. ZULRESSO [Suspect]
     Active Substance: BREXANOLONE
     Indication: Perinatal depression
     Dosage: BAG 1
     Route: 042
     Dates: start: 20220406, end: 20220406
  2. ZULRESSO [Suspect]
     Active Substance: BREXANOLONE
     Dosage: BAG 2
     Route: 042
     Dates: start: 20220406, end: 20220407
  3. ZULRESSO [Suspect]
     Active Substance: BREXANOLONE
     Dosage: BAG 3, PAUSED AT 02:10
     Route: 042
     Dates: start: 20220407, end: 20220407
  4. ZULRESSO [Suspect]
     Active Substance: BREXANOLONE
     Dosage: BAG 3, RESTARTED AT 02:30 TILL 14:04
     Route: 042
     Dates: start: 20220407, end: 20220407
  5. ZULRESSO [Suspect]
     Active Substance: BREXANOLONE
     Dosage: BAG 4
     Route: 042
     Dates: start: 20220407, end: 20220408
  6. ZULRESSO [Suspect]
     Active Substance: BREXANOLONE
     Dosage: BAG 5
     Route: 042
     Dates: start: 20220408, end: 20220408
  7. ZULRESSO [Suspect]
     Active Substance: BREXANOLONE
     Dosage: BAG 6
     Route: 042
     Dates: start: 20220408, end: 20220408
  8. ZULRESSO [Suspect]
     Active Substance: BREXANOLONE
     Dosage: BAG 7
     Route: 042
     Dates: start: 20220408, end: 20220409

REACTIONS (1)
  - Drug monitoring procedure incorrectly performed [Unknown]

NARRATIVE: CASE EVENT DATE: 20220408
